FAERS Safety Report 6213736-7 (Version None)
Quarter: 2009Q2

REPORT INFORMATION
  Report Type: 
  Country: None (occurrence: None)
  Receive Date: 20090602
  Receipt Date: 20090511
  Transmission Date: 20091009
  Serious: Yes (Hospitalization)
  Sender: FDA-Public Use
  Company Number: USA-09-0002-PRCH

PATIENT
  Age: 34 Year
  Sex: Female

DRUGS (3)
  1. PROCHIEVE 4% (PROGESTERONE GEL) [Suspect]
     Indication: MENOMETRORRHAGIA
     Dosage: 22.5MG (1/2 APPL) TOPICAL
     Route: 061
     Dates: start: 20090410, end: 20090410
  2. NATURE'S PLUS CHEWABLE IRON WITH VITAMIN C [Concomitant]
  3. ELEMENTAL IRON [Concomitant]

REACTIONS (2)
  - PULMONARY EMBOLISM [None]
  - SELF-MEDICATION [None]
